FAERS Safety Report 5357260-2 (Version None)
Quarter: 2007Q2

REPORT INFORMATION
  Report Type: 
  Country: None (occurrence: None)
  Receive Date: 20070612
  Receipt Date: 20070612
  Transmission Date: 20071010
  Serious: Yes (Other)
  Sender: FDA-Public Use
  Company Number: None

PATIENT
  Sex: Female
  Weight: 66.452 kg

DRUGS (2)
  1. NABUMETONE [Suspect]
     Indication: ANTIINFLAMMATORY THERAPY
     Dosage: 500MG TID PO
     Route: 048
     Dates: start: 20070604, end: 20070608
  2. NABUMETONE [Suspect]
     Indication: PAIN IN EXTREMITY
     Dosage: 500MG TID PO
     Route: 048
     Dates: start: 20070604, end: 20070608

REACTIONS (1)
  - URTICARIA [None]
